FAERS Safety Report 14968367 (Version 1)
Quarter: 2018Q2

REPORT INFORMATION
  Report Type: Spontaneous
  Country: CA (occurrence: CA)
  Receive Date: 20180604
  Receipt Date: 20180604
  Transmission Date: 20180711
  Serious: Yes (Other)
  Sender: FDA-Public Use
  Company Number: CA-PFIZER INC-2018216643

PATIENT
  Sex: Male

DRUGS (1)
  1. ADVIL 12 HOUR (CANADA) [Suspect]
     Active Substance: IBUPROFEN
     Dosage: UNK
     Dates: start: 201805, end: 201805

REACTIONS (4)
  - Choking [Not Recovered/Not Resolved]
  - Product size issue [Not Recovered/Not Resolved]
  - Product use complaint [Not Recovered/Not Resolved]
  - Dysphagia [Not Recovered/Not Resolved]

NARRATIVE: CASE EVENT DATE: 201805
